FAERS Safety Report 7872025-5 (Version None)
Quarter: 2011Q4

REPORT INFORMATION
  Report Type: 
  Country: None (occurrence: None)
  Receive Date: 20111029
  Receipt Date: 20110314
  Transmission Date: 20120403
  Serious: No
  Sender: FDA-Public Use
  Company Number: US-AMGEN-USASP2011008974

PATIENT
  Age: 65 Year
  Sex: Female
  Weight: 103 kg

DRUGS (1)
  1. ENBREL [Suspect]
     Indication: RHEUMATOID ARTHRITIS
     Dosage: 50 MG, QWK
     Route: 058
     Dates: start: 20101022

REACTIONS (5)
  - INCREASED UPPER AIRWAY SECRETION [None]
  - ASTHMA [None]
  - HYPERSENSITIVITY [None]
  - OXYGEN SATURATION INCREASED [None]
  - NASOPHARYNGITIS [None]
